FAERS Safety Report 9053491 (Version 2)
Quarter: 2013Q1

REPORT INFORMATION
  Report Type: Spontaneous
  Country: US (occurrence: US)
  Receive Date: 20130208
  Receipt Date: 20130215
  Transmission Date: 20140127
  Serious: No
  Sender: FDA-Public Use
  Company Number: US-BAYER-2013-014679

PATIENT
  Age: 42 Year
  Sex: Female

DRUGS (2)
  1. MIRENA [Suspect]
     Indication: CONTRACEPTION
     Dosage: 20 MCG/24HR, CONT
     Route: 015
     Dates: start: 20120409, end: 20130113
  2. MIRENA [Suspect]
     Indication: MENORRHAGIA

REACTIONS (3)
  - Drug ineffective [None]
  - Abdominal pain lower [None]
  - Polymenorrhoea [None]
